FAERS Safety Report 7749755-9 (Version None)
Quarter: 2011Q3

REPORT INFORMATION
  Report Type: 
  Country: None (occurrence: None)
  Receive Date: 20110914
  Receipt Date: 20110905
  Transmission Date: 20111222
  Serious: Yes (Other)
  Sender: FDA-Public Use
  Company Number: GB-SANOFI-AVENTIS-2011SA051940

PATIENT
  Sex: Female

DRUGS (5)
  1. DABIGATRAN [Suspect]
     Indication: CEREBROVASCULAR ACCIDENT PROPHYLAXIS
     Route: 065
  2. MULTAQ [Interacting]
     Route: 048
     Dates: start: 20110701, end: 20110820
  3. SIMVASTATIN [Concomitant]
     Indication: HYPERLIPIDAEMIA
     Route: 048
     Dates: start: 20050101
  4. DABIGATRAN [Suspect]
     Indication: ATRIAL FIBRILLATION
     Route: 065
  5. BISOPROLOL FUMARATE [Concomitant]
     Indication: ATRIAL FIBRILLATION
     Route: 048
     Dates: start: 20090101

REACTIONS (4)
  - CARDIAC TAMPONADE [None]
  - DIARRHOEA [None]
  - DRUG INTERACTION [None]
  - RECTAL HAEMORRHAGE [None]
